FAERS Safety Report 6335552-8 (Version None)
Quarter: 2009Q3

REPORT INFORMATION
  Report Type: 
  Country: None (occurrence: None)
  Receive Date: 20090827
  Receipt Date: 20090818
  Transmission Date: 20100115
  Serious: Yes (Hospitalization)
  Sender: FDA-Public Use
  Company Number: 2009AL005445

PATIENT
  Age: 21 Year
  Sex: Male

DRUGS (1)
  1. SERTRALINE HYDROCHLORIDE [Suspect]
     Indication: DEPRESSED MOOD
     Dosage: 50 MG; QD

REACTIONS (6)
  - ANAEMIA [None]
  - CHILLS [None]
  - CUTANEOUS LUPUS ERYTHEMATOSUS [None]
  - JOINT SWELLING [None]
  - PHOTOSENSITIVITY REACTION [None]
  - PYREXIA [None]
